FAERS Safety Report 8033739-X (Version None)
Quarter: 2012Q1

REPORT INFORMATION
  Report Type: 
  Country: None (occurrence: None)
  Receive Date: 20120110
  Receipt Date: 20120102
  Transmission Date: 20120608
  Serious: Yes (Hospitalization, Other)
  Sender: FDA-Public Use
  Company Number: FR-GLAXOSMITHKLINE-B0772514A

PATIENT
  Sex: Male

DRUGS (7)
  1. LOVENOX [Concomitant]
     Route: 065
  2. ASPIRIN [Concomitant]
     Route: 065
  3. STALEVO 100 [Concomitant]
     Route: 065
  4. BACLOFEN [Concomitant]
     Route: 065
  5. PAROXETINE HCL [Suspect]
     Indication: PRODUCT USED FOR UNKNOWN INDICATION
     Dosage: 10MG PER DAY
     Route: 048
     Dates: start: 20000101, end: 20111011
  6. MODOPAR [Concomitant]
     Route: 065
     Dates: end: 20111013
  7. DEPAKENE [Suspect]
     Indication: EPILEPSY
     Dosage: 500MG THREE TIMES PER DAY
     Route: 048
     Dates: start: 19980101

REACTIONS (8)
  - ASTHENIA [None]
  - DECREASED APPETITE [None]
  - ABNORMAL BEHAVIOUR [None]
  - MOTOR DYSFUNCTION [None]
  - EXTRAPYRAMIDAL DISORDER [None]
  - DYSPHAGIA [None]
  - PARKINSONISM [None]
  - COGNITIVE DISORDER [None]
